FAERS Safety Report 15784452 (Version 9)
Quarter: 2019Q3

REPORT INFORMATION
  Report Type: Report from Study
  Country: FI (occurrence: FI)
  Receive Date: 20190103
  Receipt Date: 20190819
  Transmission Date: 20191004
  Serious: Yes (Hospitalization, Disabling)
  Sender: FDA-Public Use
  Company Number: FI-ROCHE-2233958

PATIENT
  Age: 51 Year
  Sex: Male

DRUGS (12)
  1. OCRELIZUMAB. [Suspect]
     Active Substance: OCRELIZUMAB
     Dosage: SUBSEQUENT DOSES ON 10/APR/2018, 25/SEP/2018 AND 22/JAN/2019 AND 12/MAR/2019
     Route: 042
     Dates: start: 20171017
  2. HISTEC [Concomitant]
     Active Substance: CETIRIZINE HYDROCHLORIDE
     Dosage: SUBSEQUENT DOSES RECEIVED ON 19/MAY/2017, 17/OCT/2017, 22/JAN/2019, 10/APR/2018, 25/SEP/2018, 12/MAR
     Route: 065
     Dates: start: 20170509
  3. OCRELIZUMAB. [Suspect]
     Active Substance: OCRELIZUMAB
     Route: 042
  4. PANADOL FORTE [CAFFEINE;PARACETAMOL] [Concomitant]
     Dosage: 1 G (MAX. 3 G/DAY) AS NEEDED, PO
     Route: 048
  5. OCRELIZUMAB. [Suspect]
     Active Substance: OCRELIZUMAB
     Indication: PRIMARY PROGRESSIVE MULTIPLE SCLEROSIS
     Dosage: SUBSEQUENT DOSES RECEIVED ON 19/MAY/2017?TWO IV INFUSIONS OF OCRELIZUMAB 300 MG SEPARATED BY 14 DAY
     Route: 042
     Dates: start: 20170509
  6. MINISUN [Concomitant]
     Active Substance: CHOLECALCIFEROL
     Route: 048
  7. PARACETAMOL [Concomitant]
     Active Substance: ACETAMINOPHEN
     Dosage: SUBSEQUENT DOSES RECEIVED ON 19/MAY/2017, 17/OCT/2017, 12/MAR/2019.
     Route: 065
     Dates: start: 20170509
  8. BISOPROLOL [Concomitant]
     Active Substance: BISOPROLOL
     Indication: HYPERTENSION
     Route: 048
  9. OCRELIZUMAB. [Suspect]
     Active Substance: OCRELIZUMAB
     Indication: PRIMARY PROGRESSIVE MULTIPLE SCLEROSIS
     Dosage: TWO IV INFUSIONS OF OCRELIZUMAB 300 MG SEPARATED BY 14 DAY FOR CYCLE 1 AND SINGLE IV INFUSION OF OCR
     Route: 042
     Dates: end: 20130225
  10. METHYLPREDNISOLONE. [Concomitant]
     Active Substance: METHYLPREDNISOLONE
     Dosage: SUBSEQUENT DOSES RECEIVED ON 19/MAY/2017, 17/OCT/2017, 22/JAN/2019, 10/APR/2018, 25/SEP/2018, 12/MAR
     Route: 065
     Dates: start: 20170509
  11. PAMOL [Concomitant]
     Active Substance: ACETAMINOPHEN
     Dosage: SUBSEQUENT DOSE RECEIVED ON 25/SEP/2018, 22/JAN/2019.
     Route: 065
     Dates: start: 20180410
  12. TOSTRAN [Concomitant]
     Active Substance: TESTOSTERONE
     Dosage: ACCORDING TO SEPARATE INSTRUCTIONS: 3 + 3 PUMPS, APPLIED ON THE SKIN IN THE MORNING, FOR CUTANEOUS U
     Route: 065

REACTIONS (1)
  - Bacterial infection [Recovered/Resolved]

NARRATIVE: CASE EVENT DATE: 20181121
